FAERS Safety Report 20923007 (Version 1)
Quarter: 2022Q2

REPORT INFORMATION
  Report Type: Spontaneous
  Country: US (occurrence: None)
  Receive Date: 20220607
  Receipt Date: 20220607
  Transmission Date: 20220721
  Serious: Yes (Hospitalization, Other)
  Sender: FDA-Public Use
  Company Number: US-ROCHE-3110180

PATIENT
  Age: 76 Year
  Sex: Male
  Weight: 48.578 kg

DRUGS (7)
  1. LUCENTIS [Suspect]
     Active Substance: RANIBIZUMAB
     Indication: Macular degeneration
     Dosage: YES
     Route: 050
     Dates: start: 20220317
  2. ATORVASTATIN [Concomitant]
     Active Substance: ATORVASTATIN
     Indication: Blood cholesterol increased
     Route: 048
     Dates: start: 2021
  3. DONEPEZIL [Concomitant]
     Active Substance: DONEPEZIL
     Indication: Memory impairment
     Route: 048
     Dates: start: 2020
  4. MEMANTINE [Concomitant]
     Active Substance: MEMANTINE
     Indication: Memory impairment
     Route: 048
     Dates: start: 2020
  5. LOSARTAN [Concomitant]
     Active Substance: LOSARTAN
     Indication: Oedema
     Route: 048
     Dates: start: 202204
  6. BUMEX [Concomitant]
     Active Substance: BUMETANIDE
     Route: 048
     Dates: start: 202204
  7. CALCIUM CARBONATE\CHOLECALCIFEROL [Concomitant]
     Active Substance: CALCIUM CARBONATE\CHOLECALCIFEROL
     Route: 048

REACTIONS (4)
  - Proteinuria [Not Recovered/Not Resolved]
  - Hypoalbuminaemia [Not Recovered/Not Resolved]
  - Oedema [Not Recovered/Not Resolved]
  - Glomerulonephritis membranous [Not Recovered/Not Resolved]

NARRATIVE: CASE EVENT DATE: 20220401
